FAERS Safety Report 5195412-5 (Version None)
Quarter: 2006Q4

REPORT INFORMATION
  Report Type: 
  Country: None (occurrence: None)
  Receive Date: 20061025
  Receipt Date: 20060505
  Transmission Date: 20070319
  Serious: Yes (Other)
  Sender: FDA-Public Use
  Company Number: 1713747/2006/000011

PATIENT
  Sex: Male
  Weight: 61.5 kg

DRUGS (1)
  1. PREMIER 1.5% DEX. LM/LC 2L, 5-PK [Suspect]
     Indication: RENAL FAILURE CHRONIC
     Dosage: INTRAPERITONEALLY
     Route: 033
     Dates: start: 20060701

REACTIONS (1)
  - PERITONITIS [None]
